APPROVED DRUG PRODUCT: BORTEZOMIB
Active Ingredient: BORTEZOMIB
Strength: 3.5MG/VIAL
Dosage Form/Route: INJECTABLE;INTRAVENOUS, SUBCUTANEOUS
Application: A216912 | Product #001
Applicant: SCINOPHARM TAIWAN LTD
Approved: Sep 26, 2023 | RLD: No | RS: No | Type: DISCN